FAERS Safety Report 19907881 (Version 1)
Quarter: 2021Q4

REPORT INFORMATION
  Report Type: Spontaneous
  Country: CN (occurrence: CN)
  Receive Date: 20211001
  Receipt Date: 20211001
  Transmission Date: 20220303
  Serious: Yes (Hospitalization)
  Sender: FDA-Public Use
  Company Number: 2021A750357

PATIENT
  Age: 21050 Day
  Sex: Male
  Weight: 60 kg

DRUGS (1)
  1. DURVALUMAB [Suspect]
     Active Substance: DURVALUMAB
     Indication: Immunisation reaction
     Dosage: 620.0 MG , ONCE EVERY 8 DAYS, FOR 5 TIMES ON 30 APRIL 2021, 27 MAY 2021, 20 JUN 2021, 14 JUL 2021...
     Route: 041
     Dates: start: 20210430, end: 20210809

REACTIONS (3)
  - Radiation pneumonitis [Recovering/Resolving]
  - Immune-mediated lung disease [Recovering/Resolving]
  - Pneumonia [Recovering/Resolving]

NARRATIVE: CASE EVENT DATE: 20210905
